FAERS Safety Report 25457514 (Version 1)
Quarter: 2025Q2

REPORT INFORMATION
  Report Type: Report from Study
  Country: FR (occurrence: FR)
  Receive Date: 20250619
  Receipt Date: 20250619
  Transmission Date: 20250717
  Serious: Yes (Other)
  Sender: ALEXION PHARMACEUTICALS
  Company Number: FR-ASTRAZENECA-202505EEA029261FR

PATIENT
  Weight: 86 kg

DRUGS (1)
  1. DURVALUMAB [Suspect]
     Active Substance: DURVALUMAB
     Indication: Non-small cell lung cancer
     Dosage: 1500 MILLIGRAM, Q4W
     Route: 065

REACTIONS (5)
  - Neuropathy peripheral [Unknown]
  - Asthenia [Unknown]
  - Epistaxis [Unknown]
  - Thyroxine abnormal [Unknown]
  - Eastern Cooperative Oncology Group performance status worsened [Unknown]
